FAERS Safety Report 4469298-8 (Version None)
Quarter: 2004Q4

REPORT INFORMATION
  Report Type: 
  Country: None (occurrence: None)
  Receive Date: 20041008
  Receipt Date: 20030930
  Transmission Date: 20050328
  Serious: Yes (Hospitalization)
  Sender: FDA-Public Use
  Company Number: US-BRISTOL-MYERS SQUIBB COMPANY-12397311

PATIENT
  Age: 41 Year
  Sex: Female

DRUGS (8)
  1. AVAPRO [Suspect]
     Indication: HYPERTENSION
     Route: 048
  2. PREMARIN [Concomitant]
  3. ELAVIL [Concomitant]
  4. FLEXERIL [Concomitant]
     Route: 048
  5. ALPRAZOLAM [Concomitant]
  6. SINGULAIR [Concomitant]
     Route: 048
  7. ENALAPRIL MALEATE [Concomitant]
  8. NORVASC [Concomitant]

REACTIONS (2)
  - ABDOMINAL PAIN [None]
  - ANGIONEUROTIC OEDEMA [None]
